FAERS Safety Report 20137656 (Version 1)
Quarter: 2021Q4

REPORT INFORMATION
  Report Type: Spontaneous
  Country: US (occurrence: US)
  Receive Date: 20211201
  Receipt Date: 20211201
  Transmission Date: 20220303
  Serious: No
  Sender: FDA-Public Use
  Company Number: US-drreddys-SPO/USA/21/0143730

PATIENT
  Age: 56 Year
  Sex: Male
  Weight: 72 kg

DRUGS (6)
  1. OLANZAPINE [Suspect]
     Active Substance: OLANZAPINE
     Indication: Anxiety
  2. OLANZAPINE [Suspect]
     Active Substance: OLANZAPINE
     Indication: Sleep disorder
     Dosage: TAPERED DOSE DUE TO SLEEPINESS
  3. ALPRAZOLAM [Suspect]
     Active Substance: ALPRAZOLAM
     Indication: Product used for unknown indication
  4. SERTRALINE [Suspect]
     Active Substance: SERTRALINE HYDROCHLORIDE
     Indication: Product used for unknown indication
  5. VITAMINS [Concomitant]
     Active Substance: VITAMINS
     Indication: Product used for unknown indication
  6. AMINOACIDS [Concomitant]
     Indication: Product used for unknown indication

REACTIONS (8)
  - Somnolence [Unknown]
  - Incorrect dose administered [Unknown]
  - Product use in unapproved indication [Unknown]
  - Wrong technique in product usage process [Unknown]
  - Product coating issue [Unknown]
  - Withdrawal syndrome [Unknown]
  - Weight decreased [Unknown]
  - Drug ineffective [Unknown]
